FAERS Safety Report 5885754-X (Version None)
Quarter: 2008Q3

REPORT INFORMATION
  Report Type: 
  Country: None (occurrence: None)
  Receive Date: 20080916
  Receipt Date: 20080908
  Transmission Date: 20090109
  Serious: Yes (Hospitalization)
  Sender: FDA-Public Use
  Company Number: US-ELI_LILLY_AND_COMPANY-US200808002002

PATIENT
  Sex: Female
  Weight: 95.238 kg

DRUGS (5)
  1. BYETTA [Suspect]
     Indication: TYPE 2 DIABETES MELLITUS
     Dosage: 5 UG, 2/D
     Route: 058
     Dates: start: 20060101, end: 20060101
  2. BYETTA [Suspect]
     Dosage: 10 UG, 2/D
     Route: 058
     Dates: start: 20060101, end: 20080701
  3. HYDROCHLOROTHIAZIDE [Concomitant]
     Dates: start: 20070101
  4. ACE INHIBITOR NOS [Concomitant]
     Dates: start: 20080301
  5. DIURETICS [Concomitant]
     Dates: start: 20080301

REACTIONS (3)
  - BLOOD TRIGLYCERIDES INCREASED [None]
  - CHOLECYSTECTOMY [None]
  - PANCREATITIS [None]
